FAERS Safety Report 8125069 (Version 2)
Quarter: 2013Q4

REPORT INFORMATION
  Report Type: Spontaneous
  Country: US (occurrence: US)
  Receive Date: 20110907
  Receipt Date: 20131011
  Transmission Date: 20140711
  Serious: Yes (Hospitalization)
  Sender: FDA-Public Use
  Company Number: US-BRISTOL-MYERS SQUIBB COMPANY-16024911

PATIENT
  Age: 47 Year
  Sex: Female
  Weight: 65.76 kg

DRUGS (1)
  1. SPRYCEL (CML) TABS 50 MG [Suspect]
     Indication: CHRONIC MYELOID LEUKAEMIA
     Dosage: OFF SPRYCEL FOR ABOUT 1 MONTH?JUN08 OR JUL08
     Dates: start: 200806

REACTIONS (2)
  - Colitis ulcerative [Unknown]
  - Vomiting [Unknown]
